FAERS Safety Report 19553741 (Version 5)
Quarter: 2021Q4

REPORT INFORMATION
  Report Type: Spontaneous
  Country: US (occurrence: US)
  Receive Date: 20210714
  Receipt Date: 20211116
  Transmission Date: 20220303
  Serious: Yes (Other)
  Sender: FDA-Public Use
  Company Number: US-BAYER-2021-173839

PATIENT
  Sex: Female

DRUGS (3)
  1. BETASERON [Suspect]
     Active Substance: INTERFERON BETA-1B
     Dosage: 0.3 MG
  2. GABAPENTIN [Concomitant]
     Active Substance: GABAPENTIN
  3. CHENIX [Concomitant]
     Active Substance: CHENODIOL

REACTIONS (1)
  - Disease progression [None]
